FAERS Safety Report 21175541 (Version 1)
Quarter: 2022Q3

REPORT INFORMATION
  Report Type: Report from Study
  Country: US (occurrence: US)
  Receive Date: 20220805
  Receipt Date: 20220805
  Transmission Date: 20221027
  Serious: No
  Sender: FDA-Public Use
  Company Number: US-NOVARTISTESTPH-NVSC2022US176963

PATIENT
  Age: 64 Year
  Sex: Female
  Weight: 107.94 kg

DRUGS (1)
  1. COSENTYX [Suspect]
     Active Substance: SECUKINUMAB
     Indication: Product used for unknown indication
     Dosage: UNK
     Route: 065

REACTIONS (4)
  - Dyspnoea [Unknown]
  - Arthralgia [Unknown]
  - Blood pressure increased [Unknown]
  - Treatment failure [Unknown]

NARRATIVE: CASE EVENT DATE: 20220510
